FAERS Safety Report 11759621 (Version 1)
Quarter: 2015Q4

REPORT INFORMATION
  Report Type: Spontaneous
  Country: US (occurrence: US)
  Receive Date: 20151120
  Receipt Date: 20151120
  Transmission Date: 20160304
  Serious: No
  Sender: FDA-Public Use
  Company Number: US-JNJFOC-20151103103

PATIENT
  Age: 71 Year
  Sex: Female
  Weight: 49.9 kg

DRUGS (4)
  1. WOMENS ROGAINE [Suspect]
     Active Substance: MINOXIDIL
     Indication: ALOPECIA
     Dosage: MORE THAN HALF A CAP, ONCE A DAY
     Route: 061
  2. CHLORELLA VULGARIS [Concomitant]
     Active Substance: CHLORELLA VULGARIS
     Indication: NUTRITIONAL SUPPLEMENTATION
     Dosage: ONE TEASPOON AMOUNT
     Route: 065
  3. SPIRULINA SPP. [Concomitant]
     Indication: NUTRITIONAL SUPPLEMENTATION
     Dosage: ONE TEASPOON AMOUNT
     Route: 065
  4. WOMENS ROGAINE [Suspect]
     Active Substance: MINOXIDIL
     Route: 061

REACTIONS (1)
  - Peripheral swelling [Recovered/Resolved]
